FAERS Safety Report 9998920 (Version 2)
Quarter: 2014Q2

REPORT INFORMATION
  Report Type: Report from Study
  Country: JP (occurrence: JP)
  Receive Date: 20140312
  Receipt Date: 20140404
  Transmission Date: 20141212
  Serious: Yes (Death)
  Sender: FDA-Public Use
  Company Number: JP-ROCHE-1360571

PATIENT
  Sex: Male

DRUGS (8)
  1. METHOXY POLYETHYLENE GLYCOL-EPOETIN BETA [Suspect]
     Indication: NEPHROGENIC ANAEMIA
     Route: 042
     Dates: start: 20130308, end: 20131210
  2. ADALAT CR [Concomitant]
     Route: 048
     Dates: end: 20131220
  3. MICARDIS [Concomitant]
     Route: 048
     Dates: end: 20131220
  4. ARTIST [Concomitant]
     Route: 048
     Dates: end: 20131220
  5. TALION (JAPAN) [Concomitant]
     Route: 048
     Dates: end: 20131220
  6. FUROSEMIDE [Concomitant]
     Route: 048
     Dates: end: 20131220
  7. ARGAMATE [Concomitant]
     Route: 048
     Dates: end: 20131220
  8. FEBURIC [Concomitant]
     Route: 048
     Dates: start: 20130405, end: 20131220

REACTIONS (1)
  - Pneumonia [Fatal]
